FAERS Safety Report 21465574 (Version 1)
Quarter: 2022Q4

REPORT INFORMATION
  Report Type: Spontaneous
  Country: US (occurrence: US)
  Receive Date: 20221017
  Receipt Date: 20221017
  Transmission Date: 20230112
  Serious: Yes (Life-Threatening, Hospitalization, Other)
  Sender: FDA-Public Use
  Company Number: US-Melinta Therapeutics, LLC-US-MLNT-22-00154

PATIENT
  Age: 52 Year
  Sex: Male
  Weight: 97.5 kg

DRUGS (12)
  1. KIMYRSA [Suspect]
     Active Substance: ORITAVANCIN DIPHOSPHATE
     Indication: Cellulitis
     Dosage: NOT PROVIDED.
     Route: 041
     Dates: start: 20220704, end: 20220704
  2. KIMYRSA [Suspect]
     Active Substance: ORITAVANCIN DIPHOSPHATE
     Indication: Bacteraemia
     Dosage: NOT PROVIDED.
     Route: 041
     Dates: start: 202207, end: 202207
  3. KIMYRSA [Suspect]
     Active Substance: ORITAVANCIN DIPHOSPHATE
     Indication: Bone disorder
     Dosage: NOT PROVIDED.
     Route: 041
     Dates: start: 2022, end: 2022
  4. ASPIRIN [Concomitant]
     Active Substance: ASPIRIN
     Indication: Product used for unknown indication
     Route: 048
     Dates: start: 2019
  5. CITALOPRAM [Concomitant]
     Active Substance: CITALOPRAM HYDROBROMIDE
     Indication: Product used for unknown indication
     Route: 048
  6. CRESTOR [Concomitant]
     Active Substance: ROSUVASTATIN CALCIUM
     Indication: Product used for unknown indication
  7. GLIPIZIDE [Concomitant]
     Active Substance: GLIPIZIDE
     Indication: Product used for unknown indication
  8. LISINOPRIL [Concomitant]
     Active Substance: LISINOPRIL
     Indication: Product used for unknown indication
     Route: 048
  9. INSULIN GLARGINE [Concomitant]
     Active Substance: INSULIN GLARGINE
     Indication: Product used for unknown indication
     Route: 058
  10. METOPROLOL [Concomitant]
     Active Substance: METOPROLOL
     Indication: Product used for unknown indication
     Route: 048
  11. VANCOMYCIN [Concomitant]
     Active Substance: VANCOMYCIN
     Indication: Debridement
     Dosage: NOT PROVIDED
     Route: 042
     Dates: start: 20220920, end: 20220929
  12. MEROPENEM [Concomitant]
     Active Substance: MEROPENEM
     Indication: Debridement
     Dosage: NOT PROVIDED
     Route: 042
     Dates: start: 20220920, end: 20220929

REACTIONS (10)
  - Influenza like illness [Recovering/Resolving]
  - Sepsis [Unknown]
  - Acute kidney injury [Unknown]
  - Pulmonary oedema [Recovering/Resolving]
  - Bone disorder [Unknown]
  - Jarisch-Herxheimer reaction [Unknown]
  - Nausea [Recovering/Resolving]
  - Vomiting [Recovering/Resolving]
  - Malaise [Unknown]
  - Multiple use of single-use product [Unknown]

NARRATIVE: CASE EVENT DATE: 20220714
